FAERS Safety Report 23469003 (Version 6)
Quarter: 2024Q3

REPORT INFORMATION
  Report Type: Report from Study
  Country: JP (occurrence: JP)
  Receive Date: 20240202
  Receipt Date: 20240815
  Transmission Date: 20241017
  Serious: Yes (Hospitalization, Other)
  Sender: GLAXOSMITHKLINE
  Company Number: JP-GSK-JP2021JPN054541

PATIENT

DRUGS (21)
  1. MEPOLIZUMAB [Suspect]
     Active Substance: MEPOLIZUMAB
     Indication: Eosinophilic granulomatosis with polyangiitis
     Dosage: 300 MG, Q4W
     Dates: start: 20191018
  2. BETAMETHASONE [Concomitant]
     Active Substance: BETAMETHASONE\BETAMETHASONE DIPROPIONATE
     Indication: Eosinophilic granulomatosis with polyangiitis
     Dosage: 0.25 MG, QD
     Route: 048
     Dates: end: 20200113
  3. BETAMETHASONE [Concomitant]
     Active Substance: BETAMETHASONE\BETAMETHASONE DIPROPIONATE
     Dosage: 0.125 MG, QD
     Route: 048
     Dates: start: 20200114, end: 20200310
  4. BETAMETHASONE [Concomitant]
     Active Substance: BETAMETHASONE\BETAMETHASONE DIPROPIONATE
     Dosage: 3 MG, QD
     Route: 048
     Dates: start: 20200210, end: 20200213
  5. BETAMETHASONE [Concomitant]
     Active Substance: BETAMETHASONE\BETAMETHASONE DIPROPIONATE
     Dosage: 3 MG, QD
     Route: 048
     Dates: start: 20210507, end: 20210509
  6. BETAMETHASONE [Concomitant]
     Active Substance: BETAMETHASONE\BETAMETHASONE DIPROPIONATE
     Dosage: 2 MG, QD
     Route: 048
     Dates: start: 20210510, end: 20210512
  7. BETAMETHASONE [Concomitant]
     Active Substance: BETAMETHASONE\BETAMETHASONE DIPROPIONATE
     Dosage: 1 MG, QD
     Route: 048
     Dates: start: 20210513, end: 20210515
  8. BETAMETHASONE [Concomitant]
     Active Substance: BETAMETHASONE\BETAMETHASONE DIPROPIONATE
     Dosage: 0.25 MG, QD
     Route: 048
     Dates: start: 20210605, end: 20210806
  9. BETAMETHASONE [Concomitant]
     Active Substance: BETAMETHASONE\BETAMETHASONE DIPROPIONATE
     Dosage: 0.5 MG, QD
     Route: 048
     Dates: start: 20210819
  10. FLUTICASONE PROPIONATE\FORMOTEROL FUMARATE [Concomitant]
     Active Substance: FLUTICASONE PROPIONATE\FORMOTEROL FUMARATE
     Indication: Eosinophilic granulomatosis with polyangiitis
     Dosage: 1000 ?G, 1D
     Route: 055
  11. FLUTICASONE PROPIONATE\FORMOTEROL FUMARATE [Concomitant]
     Active Substance: FLUTICASONE PROPIONATE\FORMOTEROL FUMARATE
     Dosage: UNK
     Route: 055
     Dates: start: 20191205, end: 20191205
  12. MONTELUKAST SODIUM [Concomitant]
     Active Substance: MONTELUKAST SODIUM
     Indication: Eosinophilic granulomatosis with polyangiitis
     Dosage: UNK
  13. THEO-DUR [Concomitant]
     Active Substance: THEOPHYLLINE ANHYDROUS
     Indication: Eosinophilic granulomatosis with polyangiitis
     Dosage: UNK
  14. SPIRIVA [Concomitant]
     Active Substance: TIOTROPIUM BROMIDE MONOHYDRATE
     Indication: Eosinophilic granulomatosis with polyangiitis
     Dosage: UNK
  15. Rinderon [Concomitant]
     Indication: Eosinophilic granulomatosis with polyangiitis
     Dosage: 2 MG, QD
     Route: 048
     Dates: start: 20210807, end: 20210808
  16. Rinderon [Concomitant]
     Dosage: 1 MG, QD
     Route: 048
     Dates: start: 20210809, end: 20210810
  17. Rinderon [Concomitant]
     Dosage: 0.5 MG, QD
     Route: 048
     Dates: start: 20210811, end: 20210811
  18. Rinderon [Concomitant]
     Dosage: 2.5 MG, QD
     Route: 048
     Dates: start: 20210812, end: 20210812
  19. Rinderon [Concomitant]
     Dosage: 1 MG, QD
     Route: 048
     Dates: start: 20210813, end: 20210813
  20. Rinderon [Concomitant]
     Dosage: 0.5 MG, QD
     Route: 048
     Dates: start: 20210814, end: 20210818
  21. SULFAMETHOXAZOLE\TRIMETHOPRIM [Concomitant]
     Active Substance: SULFAMETHOXAZOLE\TRIMETHOPRIM
     Indication: Prophylaxis
     Dosage: UNK

REACTIONS (11)
  - Asthma [Recovering/Resolving]
  - Appendicitis perforated [Recovered/Resolved]
  - Secondary adrenocortical insufficiency [Recovering/Resolving]
  - Asthma [Recovering/Resolving]
  - Asthma [Recovering/Resolving]
  - Asthma [Recovering/Resolving]
  - Asthma [Recovering/Resolving]
  - Diverticulitis [Recovering/Resolving]
  - Bacterial infection [Recovered/Resolved]
  - Appendicitis [Recovered/Resolved]
  - Faecalith [Recovered/Resolved]

NARRATIVE: CASE EVENT DATE: 20191205
